FAERS Safety Report 12158439 (Version 1)
Quarter: 2016Q1

REPORT INFORMATION
  Report Type: Spontaneous
  Country: US (occurrence: US)
  Receive Date: 20160308
  Receipt Date: 20160308
  Transmission Date: 20160526
  Serious: No
  Sender: FDA-Public Use
  Company Number: US-JNJFOC-20150407262

PATIENT
  Age: 82 Year
  Sex: Male

DRUGS (4)
  1. ZINC [Concomitant]
     Active Substance: ZINC\ZINC CHLORIDE
  2. ASPIRIN. [Concomitant]
     Active Substance: ASPIRIN
     Indication: ATRIOVENTRICULAR BLOCK
  3. PRILOSEC [Concomitant]
     Active Substance: OMEPRAZOLE MAGNESIUM
  4. IMBRUVICA [Suspect]
     Active Substance: IBRUTINIB
     Indication: CHRONIC LYMPHOCYTIC LEUKAEMIA
     Route: 048
     Dates: start: 2014

REACTIONS (3)
  - Cataract [Not Recovered/Not Resolved]
  - Bladder neck obstruction [Recovering/Resolving]
  - Dysuria [Recovering/Resolving]

NARRATIVE: CASE EVENT DATE: 2014
